FAERS Safety Report 19676800 (Version 1)
Quarter: 2021Q3

REPORT INFORMATION
  Report Type: Spontaneous
  Country: US (occurrence: US)
  Receive Date: 20210809
  Receipt Date: 20210809
  Transmission Date: 20211014
  Serious: Yes (Other)
  Sender: FDA-Public Use
  Company Number: US-PFIZER INC-202100957820

PATIENT
  Age: 67 Year
  Sex: Male

DRUGS (1)
  1. CLINDAMYCIN HCL [Suspect]
     Active Substance: CLINDAMYCIN HYDROCHLORIDE
     Dosage: 350 MG, 4X/DAY (TAKE ONE EVERY SIX HOURS)
     Route: 048
     Dates: start: 20210115, end: 2021

REACTIONS (21)
  - Burning sensation [Unknown]
  - Vision blurred [Not Recovered/Not Resolved]
  - Eye irritation [Not Recovered/Not Resolved]
  - Abdominal pain upper [Recovering/Resolving]
  - Chest pain [Recovering/Resolving]
  - Paraesthesia [Not Recovered/Not Resolved]
  - Musculoskeletal pain [Unknown]
  - Dyspnoea [Recovered/Resolved]
  - Back disorder [Not Recovered/Not Resolved]
  - Pain in extremity [Unknown]
  - Pain [Not Recovered/Not Resolved]
  - Migraine [Unknown]
  - Urinary retention [Recovered/Resolved]
  - Sciatica [Unknown]
  - Arthralgia [Not Recovered/Not Resolved]
  - Dry skin [Not Recovered/Not Resolved]
  - Paralysis [Unknown]
  - Diarrhoea [Recovering/Resolving]
  - Ocular hyperaemia [Unknown]
  - Chapped lips [Not Recovered/Not Resolved]
  - Dry eye [Unknown]
